FAERS Safety Report 24448010 (Version 1)
Quarter: 2024Q4

REPORT INFORMATION
  Report Type: Spontaneous
  Country: CA (occurrence: CA)
  Receive Date: 20241016
  Receipt Date: 20241016
  Transmission Date: 20250115
  Serious: Yes (Other)
  Sender: LEADING PHARMA
  Company Number: CA-LEADINGPHARMA-CA-2024LEALIT00458

PATIENT
  Age: 35 Year
  Sex: Female

DRUGS (1)
  1. HYDROXYUREA [Suspect]
     Active Substance: HYDROXYUREA
     Indication: Sickle cell anaemia with crisis

REACTIONS (1)
  - Dry gangrene [Recovering/Resolving]
